FAERS Safety Report 5421542-6 (Version None)
Quarter: 2007Q3

REPORT INFORMATION
  Report Type: 
  Country: None (occurrence: None)
  Receive Date: 20070726
  Receipt Date: 20070228
  Transmission Date: 20080115
  Serious: Yes (Hospitalization)
  Sender: FDA-Public Use
  Company Number: US200703000461

PATIENT
  Age: 75 Year
  Sex: Male

DRUGS (5)
  1. FORTEO [Suspect]
     Indication: OSTEOPOROSIS
     Dates: start: 20061216
  2. FORTEO PEN (TERIPARATIDE) PEN, DISPOSABLE [Concomitant]
  3. FORTEO PEN (TERIPARATIDE) PEN, DISPOSABLE [Concomitant]
  4. BONIVA (IBANDRONATE SODIUM) [Concomitant]
  5. FIORICET [Concomitant]

REACTIONS (7)
  - ASTHENIA [None]
  - DYSPNOEA [None]
  - MIGRAINE [None]
  - MUSCLE SPASMS [None]
  - PAIN [None]
  - PAIN IN EXTREMITY [None]
  - PNEUMONIA [None]
